FAERS Safety Report 24966499 (Version 1)
Quarter: 2025Q1

REPORT INFORMATION
  Report Type: Spontaneous
  Country: US (occurrence: None)
  Receive Date: 20250213
  Receipt Date: 20250213
  Transmission Date: 20250409
  Serious: No
  Sender: FDA-CTU
  Company Number: None

PATIENT
  Sex: Female

DRUGS (3)
  1. HUMIRA [Suspect]
     Active Substance: ADALIMUMAB
     Indication: Rheumatoid arthritis
     Dosage: OTHER FREQUENCY : EVERY14DAYS;?
     Route: 058
     Dates: start: 202408
  2. FOLICAOD [Concomitant]
  3. MFTHOTRFXATE [Concomitant]

REACTIONS (5)
  - Drug ineffective [None]
  - Peripheral swelling [None]
  - Joint swelling [None]
  - Arthralgia [None]
  - Burning sensation [None]
